FAERS Safety Report 23886411 (Version 1)
Quarter: 2024Q2

REPORT INFORMATION
  Report Type: Report from Study
  Country: US (occurrence: US)
  Receive Date: 20240522
  Receipt Date: 20240522
  Transmission Date: 20240715
  Serious: Yes (Other)
  Sender: FDA-Public Use
  Company Number: US-MIRATI-MT2024PM06490

PATIENT
  Sex: Male
  Weight: 59.864 kg

DRUGS (4)
  1. KRAZATI [Suspect]
     Active Substance: ADAGRASIB
     Indication: Colon cancer
     Dosage: 200 MG, BID (ONCE IN THE MORNING, ONCE IN THE EVENING)
     Route: 048
     Dates: start: 20240229
  2. KRAZATI [Suspect]
     Active Substance: ADAGRASIB
     Indication: Colon cancer stage IV
     Dosage: 600 MG, BID
     Route: 048
     Dates: start: 202403
  3. KRAZATI [Suspect]
     Active Substance: ADAGRASIB
     Indication: Metastases to bone
  4. TAMSULOSIN [Concomitant]
     Active Substance: TAMSULOSIN
     Indication: Prostatomegaly
     Dosage: 4 MG

REACTIONS (13)
  - Weight decreased [Unknown]
  - Gait disturbance [Not Recovered/Not Resolved]
  - Ageusia [Not Recovered/Not Resolved]
  - Skin fissures [Not Recovered/Not Resolved]
  - Vision blurred [Unknown]
  - Taste disorder [Unknown]
  - Diarrhoea [Not Recovered/Not Resolved]
  - Dyspnoea [Not Recovered/Not Resolved]
  - Abdominal pain upper [Not Recovered/Not Resolved]
  - Productive cough [Not Recovered/Not Resolved]
  - Dizziness [Unknown]
  - Intentional dose omission [Unknown]
  - Off label use [Unknown]

NARRATIVE: CASE EVENT DATE: 20240301
